FAERS Safety Report 18320101 (Version 1)
Quarter: 2020Q3

REPORT INFORMATION
  Report Type: Report from Study
  Country: CA (occurrence: CA)
  Receive Date: 20200929
  Receipt Date: 20200929
  Transmission Date: 20201103
  Serious: Yes (Other)
  Sender: FDA-Public Use
  Company Number: CA-CELLTRION INC.-2020CA028239

PATIENT

DRUGS (9)
  1. INFLIXIMAB PFIZER (UNKNOWN) [Suspect]
     Active Substance: INFLIXIMAB
     Indication: CROHN^S DISEASE
     Dosage: 600 MG
     Route: 042
  2. AZATHIOPRINE. [Concomitant]
     Active Substance: AZATHIOPRINE
  3. FLAGYL [Concomitant]
     Active Substance: METRONIDAZOLE\METRONIDAZOLE HYDROCHLORIDE
  4. METOPROLOL. [Concomitant]
     Active Substance: METOPROLOL
     Dosage: 50 MG, 2X/DAY
  5. ENTYVIO [Suspect]
     Active Substance: VEDOLIZUMAB
     Dosage: 300 MG,
     Route: 042
  6. CORTIMENT [HYDROCORTISONE] [Concomitant]
     Active Substance: HYDROCORTISONE
     Dosage: UNK, 1X/DAY
  7. ENTYVIO [Suspect]
     Active Substance: VEDOLIZUMAB
     Indication: CROHN^S DISEASE
     Dosage: 300 MG, MONTHLY (EVERY 4 WEEKS)
     Route: 042
  8. ENTYVIO [Suspect]
     Active Substance: VEDOLIZUMAB
     Dosage: 300 MG, MONTHLY (EVERY 4 WEEKS)
     Route: 042
  9. TRAMADOL. [Concomitant]
     Active Substance: TRAMADOL

REACTIONS (5)
  - Off label use [Not Recovered/Not Resolved]
  - Drug ineffective [Not Recovered/Not Resolved]
  - Diarrhoea [Not Recovered/Not Resolved]
  - Faecal calprotectin increased [Not Recovered/Not Resolved]
  - Haemorrhage [Not Recovered/Not Resolved]
